FAERS Safety Report 8954233 (Version 1)
Quarter: 2012Q4

REPORT INFORMATION
  Report Type: 
  Country: DE (occurrence: DE)
  Receive Date: 20121207
  Receipt Date: 20121207
  Transmission Date: 20130627
  Serious: Yes (Death)
  Sender: FDA-Public Use
  Company Number: DE-TEVA-372027GER

PATIENT
  Age: 51 Year
  Sex: Male

DRUGS (4)
  1. ALPRAZOLAM [Suspect]
     Route: 048
     Dates: start: 20120620
  2. ZOPICLONE [Suspect]
     Dates: start: 20120619
  3. TAVOR [Suspect]
     Route: 048
     Dates: start: 20120619
  4. TAVOR [Suspect]
     Route: 048
     Dates: start: 20120620

REACTIONS (1)
  - Death [Fatal]
